FAERS Safety Report 23710190 (Version 1)
Quarter: 2024Q2

REPORT INFORMATION
  Report Type: Spontaneous
  Country: IT (occurrence: IT)
  Receive Date: 20240405
  Receipt Date: 20240405
  Transmission Date: 20240715
  Serious: Yes (Other)
  Sender: FDA-Public Use
  Company Number: None

PATIENT
  Age: 42 Year
  Sex: Female

DRUGS (3)
  1. SIMPONI [Suspect]
     Active Substance: GOLIMUMAB
     Indication: Rheumatoid arthritis
     Dosage: 50 MG SCEVERY 28 DAYS
     Route: 058
     Dates: start: 20230110, end: 20230914
  2. SIMPONI [Suspect]
     Active Substance: GOLIMUMAB
  3. SIMPONI [Suspect]
     Active Substance: GOLIMUMAB

REACTIONS (3)
  - Bronchospasm [Recovered/Resolved]
  - Epiglottic oedema [Recovered/Resolved]
  - Rash [Recovered/Resolved]

NARRATIVE: CASE EVENT DATE: 20230901
